FAERS Safety Report 9912248 (Version 2)
Quarter: 2014Q2

REPORT INFORMATION
  Report Type: Spontaneous
  Country: US (occurrence: US)
  Receive Date: 20140220
  Receipt Date: 20140513
  Transmission Date: 20141212
  Serious: No
  Sender: FDA-Public Use
  Company Number: US-SA-2014SA005426

PATIENT
  Age: 70 Year
  Sex: Female
  Weight: 56.7 kg

DRUGS (7)
  1. ZALTRAP [Suspect]
     Indication: COLORECTAL CANCER
     Route: 042
     Dates: start: 20130823, end: 20130823
  2. ZALTRAP [Suspect]
     Indication: COLORECTAL CANCER
     Route: 042
  3. CALCIUM/VITAMIN D [Concomitant]
  4. CENTRUM SILVER [Concomitant]
  5. NEUROMIN [Concomitant]
  6. RANITIDINE [Concomitant]
  7. XELODA [Concomitant]

REACTIONS (3)
  - Pain [Recovered/Resolved]
  - Nausea [Recovered/Resolved]
  - Fatigue [Recovered/Resolved]
